FAERS Safety Report 8576621-1 (Version None)
Quarter: 2012Q3

REPORT INFORMATION
  Report Type: 
  Country: None (occurrence: None)
  Receive Date: 20120807
  Receipt Date: 20120801
  Transmission Date: 20120928
  Serious: Yes (Hospitalization)
  Sender: FDA-Public Use
  Company Number: JP-TEVA-351893USA

PATIENT
  Age: 76 Year
  Sex: Male

DRUGS (2)
  1. TREANDA [Suspect]
     Indication: MANTLE CELL LYMPHOMA
     Dosage: REGIMEN 1 + 2
     Route: 042
     Dates: start: 20110831, end: 20111005
  2. TREANDA [Suspect]
     Dosage: REGIMEN #
     Route: 042
     Dates: start: 20121115, end: 20111116

REACTIONS (1)
  - AGRANULOCYTOSIS [None]
